FAERS Safety Report 21949114 (Version 1)
Quarter: 2023Q1

REPORT INFORMATION
  Report Type: Spontaneous
  Country: AU (occurrence: AU)
  Receive Date: 20230203
  Receipt Date: 20230203
  Transmission Date: 20230418
  Serious: Yes (Death, Hospitalization)
  Sender: FDA-Public Use
  Company Number: AU-CIPLA LTD.-2023AU00652

PATIENT

DRUGS (1)
  1. PREGABALIN [Suspect]
     Active Substance: PREGABALIN
     Indication: Neuralgia
     Dosage: 25 MILLIGRAM, QD
     Route: 048
     Dates: start: 20220624, end: 20220628

REACTIONS (3)
  - Gait disturbance [Fatal]
  - Fall [Fatal]
  - Dysarthria [Fatal]

NARRATIVE: CASE EVENT DATE: 20220624
